FAERS Safety Report 6706623-9 (Version None)
Quarter: 2010Q2

REPORT INFORMATION
  Report Type: 
  Country: None (occurrence: None)
  Receive Date: 20100503
  Receipt Date: 20100420
  Transmission Date: 20101027
  Serious: Yes (Death, Hospitalization)
  Sender: FDA-Public Use
  Company Number: US-ROCHE-698901

PATIENT
  Sex: Male
  Weight: 66.5 kg

DRUGS (3)
  1. BEVACIZUMAB [Suspect]
     Dosage: 1009 UNK, Q3W
     Route: 042
     Dates: start: 20100407
  2. RO 5398760 (ANTI-NRP1) [Suspect]
     Dosage: 2422 UNK, Q3W
     Route: 042
     Dates: start: 20100407
  3. LOVENOX [Concomitant]
     Indication: DRUG USE FOR UNKNOWN INDICATION

REACTIONS (1)
  - DEATH [None]
